FAERS Safety Report 10185756 (Version 1)
Quarter: 2014Q2

REPORT INFORMATION
  Report Type: Spontaneous
  Country: US (occurrence: US)
  Receive Date: 20140521
  Receipt Date: 20140521
  Transmission Date: 20141212
  Serious: Yes (Hospitalization)
  Sender: FDA-Public Use
  Company Number: US-BAYER-2014-075192

PATIENT
  Age: 39 Year
  Sex: Female
  Weight: 61.22 kg

DRUGS (5)
  1. YAZ [Suspect]
  2. METOPROLOL [Concomitant]
     Dosage: 25 MG, UNK
  3. VERAPAMIL [Concomitant]
     Dosage: 120 MG, UNK
  4. AMPICILLIN [Concomitant]
     Dosage: 500 MG, UNK
  5. DOFETILIDE [Concomitant]

REACTIONS (3)
  - Pelvic venous thrombosis [None]
  - Deep vein thrombosis [None]
  - Thrombophlebitis superficial [None]
